FAERS Safety Report 10288148 (Version 2)
Quarter: 2014Q3

REPORT INFORMATION
  Report Type: Spontaneous
  Country: US (occurrence: None)
  Receive Date: 20140707
  Receipt Date: 20140808
  Transmission Date: 20150326
  Serious: Yes (Hospitalization)
  Sender: FDA-Public Use
  Company Number: UNT-2014-003100

PATIENT
  Age: 68 Year
  Sex: Male
  Weight: 80.7 kg

DRUGS (4)
  1. REMODULIN [Suspect]
     Active Substance: TREPROSTINIL
     Indication: PULMONARY ARTERIAL HYPERTENSION
     Dosage: 0.0105 UG/KG, CONTINUING, SUBCUTANEOUS?
     Route: 058
     Dates: start: 20140428
  2. TRACLEER (BOSENTAN) UNKNOWN [Concomitant]
  3. ADCIRCA (TADALAFIL) UNKNOWN [Concomitant]
  4. COUMADIN /00014802/ (WARFARIN SODIUM) UNKNOWN [Concomitant]

REACTIONS (1)
  - Renal failure [None]

NARRATIVE: CASE EVENT DATE: 20140623
